FAERS Safety Report 5977267-1 (Version None)
Quarter: 2008Q4

REPORT INFORMATION
  Report Type: 
  Country: None (occurrence: None)
  Receive Date: 20081201
  Receipt Date: 20081201
  Transmission Date: 20090506
  Serious: Yes (Life-Threatening)
  Sender: FDA-Public Use
  Company Number: None

PATIENT
  Age: 36 Year
  Sex: Female
  Weight: 88.4514 kg

DRUGS (2)
  1. LAMOTRIGINE [Suspect]
     Indication: CONVULSION
     Dosage: TWICE DAILY MORNING AND PO
     Route: 048
     Dates: start: 20081019, end: 20081107
  2. KEPPRA XR [Suspect]
     Indication: CONVULSION
     Dosage: TWICE DAILY MORNING AND PO
     Route: 048
     Dates: start: 20081101, end: 20081124

REACTIONS (5)
  - DEPRESSION [None]
  - IMPAIRED WORK ABILITY [None]
  - OBSESSIVE THOUGHTS [None]
  - PANIC ATTACK [None]
  - SUICIDAL IDEATION [None]
